FAERS Safety Report 25298224 (Version 1)
Quarter: 2025Q2

REPORT INFORMATION
  Report Type: Other
  Country: US (occurrence: US)
  Receive Date: 20250512
  Receipt Date: 20250512
  Transmission Date: 20250717
  Serious: Yes (Hospitalization, Other)
  Sender: BIONPHARMA INC.
  Company Number: US-Bion-014933

PATIENT
  Age: 74 Year
  Sex: Female

DRUGS (1)
  1. NAPROXEN SODIUM [Suspect]
     Active Substance: NAPROXEN SODIUM
     Indication: Fibromyalgia

REACTIONS (5)
  - Anastomotic ulcer [Unknown]
  - Melaena [Unknown]
  - Gastric fistula [Unknown]
  - Intentional product misuse [Unknown]
  - Overdose [Unknown]
